FAERS Safety Report 6399934-0 (Version None)
Quarter: 2009Q4

REPORT INFORMATION
  Report Type: 
  Country: None (occurrence: None)
  Receive Date: 20091014
  Receipt Date: 20091009
  Transmission Date: 20100525
  Serious: Yes (Other)
  Sender: FDA-Public Use
  Company Number: US-EISAI INC.-E2080-00220-SPO-US

PATIENT
  Age: 13 Year
  Sex: Female

DRUGS (2)
  1. BANZEL [Suspect]
     Indication: EPILEPSY
     Route: 048
     Dates: start: 20090601
  2. ANTIEPILEPTICS [Concomitant]
     Indication: EPILEPSY

REACTIONS (2)
  - FALL [None]
  - TOOTH INJURY [None]
